FAERS Safety Report 6005452-1 (Version None)
Quarter: 2008Q4

REPORT INFORMATION
  Report Type: 
  Country: None (occurrence: None)
  Receive Date: 20081217
  Receipt Date: 20081205
  Transmission Date: 20090506
  Serious: Yes (Hospitalization)
  Sender: FDA-Public Use
  Company Number: JP-JNJFOC-20081202611

PATIENT
  Sex: Female
  Weight: 52 kg

DRUGS (3)
  1. REMICADE [Suspect]
     Dosage: 5TH INFUSION
     Route: 042
  2. REMICADE [Suspect]
     Indication: CROHN'S DISEASE
     Dosage: INFUSION 1-4 ON UNSPECIFIED DATES
     Route: 042
  3. PENTASA [Concomitant]
     Route: 048

REACTIONS (3)
  - ARTHRITIS [None]
  - PYREXIA [None]
  - TYPE IV HYPERSENSITIVITY REACTION [None]
